FAERS Safety Report 26087717 (Version 1)
Quarter: 2025Q4

REPORT INFORMATION
  Report Type: Spontaneous
  Country: CN (occurrence: CN)
  Receive Date: 20251125
  Receipt Date: 20251125
  Transmission Date: 20260117
  Serious: Yes (Hospitalization)
  Sender: Haleon PLC
  Company Number: CN-HALEON-2275438

PATIENT
  Age: 13 Year
  Sex: Female
  Weight: 51.5 kg

DRUGS (8)
  1. IBUPROFEN [Suspect]
     Active Substance: IBUPROFEN
     Indication: Emotional disorder
     Dosage: SUSTAINED-RELEASE CAPSULES
     Dates: start: 20251117, end: 20251117
  2. IBUPROFEN [Suspect]
     Active Substance: IBUPROFEN
     Indication: Tension
  3. ACETAMINOPHEN\CODEINE PHOSPHATE\PSEUDOEPHEDRINE HYDROCHLORIDE [Suspect]
     Active Substance: ACETAMINOPHEN\CODEINE PHOSPHATE\PSEUDOEPHEDRINE HYDROCHLORIDE
     Indication: Emotional disorder
     Dates: start: 20251117, end: 20251117
  4. ACETAMINOPHEN\CODEINE PHOSPHATE\PSEUDOEPHEDRINE HYDROCHLORIDE [Suspect]
     Active Substance: ACETAMINOPHEN\CODEINE PHOSPHATE\PSEUDOEPHEDRINE HYDROCHLORIDE
     Indication: Tension
  5. CHLORPHENIRAMINE MALEATE\PSEUDOEPHEDRINE HYDROCHLORIDE [Suspect]
     Active Substance: CHLORPHENIRAMINE MALEATE\PSEUDOEPHEDRINE HYDROCHLORIDE
     Indication: Emotional disorder
     Dates: start: 20251117, end: 20251117
  6. CHLORPHENIRAMINE MALEATE\PSEUDOEPHEDRINE HYDROCHLORIDE [Suspect]
     Active Substance: CHLORPHENIRAMINE MALEATE\PSEUDOEPHEDRINE HYDROCHLORIDE
     Indication: Tension
  7. AMOXICILLIN [Suspect]
     Active Substance: AMOXICILLIN
     Indication: Emotional disorder
     Dates: start: 20251117, end: 20251117
  8. AMOXICILLIN [Suspect]
     Active Substance: AMOXICILLIN
     Indication: Tension

REACTIONS (5)
  - Asthenia [Recovering/Resolving]
  - Overdose [Unknown]
  - Dizziness [Recovering/Resolving]
  - Toxicity to various agents [Recovering/Resolving]
  - Nausea [Recovering/Resolving]

NARRATIVE: CASE EVENT DATE: 20251117
